FAERS Safety Report 4899301-2 (Version None)
Quarter: 2006Q1

REPORT INFORMATION
  Report Type: 
  Country: None (occurrence: None)
  Receive Date: 20060131
  Receipt Date: 20060124
  Transmission Date: 20060701
  Serious: Yes (Hospitalization, Other)
  Sender: FDA-Public Use
  Company Number: 2005046591

PATIENT
  Age: 1 Day
  Sex: Female
  Weight: 2.35 kg

DRUGS (2)
  1. ZOLOFT [Suspect]
     Indication: ILL-DEFINED DISORDER
     Dosage: 100 MG (100  MG, 1 IN 1 D), PLACENTAL
     Dates: start: 20050101, end: 20050330
  2. CONTRACEPTIVE,  (CONTRACEPTIVE, UNSPECIFIED) [Concomitant]

REACTIONS (5)
  - CAESAREAN SECTION [None]
  - DIARRHOEA [None]
  - DRUG EXPOSURE DURING PREGNANCY [None]
  - PREMATURE BABY [None]
  - SMALL FOR DATES BABY [None]
